FAERS Safety Report 7250094-3 (Version None)
Quarter: 2011Q1

REPORT INFORMATION
  Report Type: 
  Country: None (occurrence: None)
  Receive Date: 20110128
  Receipt Date: 20110110
  Transmission Date: 20110831
  Serious: Yes (Hospitalization, Other)
  Sender: FDA-Public Use
  Company Number: US-BAYER-2010-006384

PATIENT
  Sex: Female

DRUGS (5)
  1. VALIUM NOVUM [Concomitant]
  2. UNCODEABLE ^UNKNOWN MANUFACTURER^ [Concomitant]
  3. UNCODEABLE ^UNKNOWN MANUFACTURER^ [Concomitant]
  4. BETASERON [Suspect]
     Indication: PRODUCT USED FOR UNKNOWN INDICATION
  5. BACLOFEN [Concomitant]

REACTIONS (8)
  - DRUG HYPERSENSITIVITY [None]
  - LYME DISEASE [None]
  - JOINT SWELLING [None]
  - VOMITING [None]
  - NEOPLASM [None]
  - WHITE BLOOD CELL COUNT DECREASED [None]
  - WEIGHT DECREASED [None]
  - BLOOD PRESSURE DECREASED [None]
